FAERS Safety Report 15128039 (Version 3)
Quarter: 2022Q1

REPORT INFORMATION
  Report Type: Report from Study
  Country: TW (occurrence: TW)
  Receive Date: 20180710
  Receipt Date: 20220131
  Transmission Date: 20220423
  Serious: Yes (Hospitalization)
  Sender: FDA-Public Use
  Company Number: TW-ABBVIE-18K-153-2411955-00

PATIENT
  Sex: Male
  Weight: 60 kg

DRUGS (24)
  1. HUMIRA [Suspect]
     Active Substance: ADALIMUMAB
     Indication: Ankylosing spondylitis
     Route: 058
     Dates: start: 20180605
  2. TEDALIN [Concomitant]
     Indication: Iron deficiency anaemia
     Route: 048
     Dates: start: 20180605, end: 20180703
  3. SALINE [Concomitant]
     Active Substance: SODIUM CHLORIDE
     Indication: Nutritional supplementation
     Dosage: 0.9 PERCENT 500 ML/BAG, STAT
     Route: 041
     Dates: start: 20180624, end: 20180624
  4. SULFASALAZINE [Concomitant]
     Active Substance: SULFASALAZINE
     Indication: Gastrointestinal disorder
     Route: 048
     Dates: start: 20180605, end: 201806
  5. SULFASALAZINE [Concomitant]
     Active Substance: SULFASALAZINE
     Route: 048
     Dates: start: 20180626
  6. METHON [Concomitant]
     Indication: Respiratory disorder
     Route: 048
     Dates: start: 20180624, end: 20180627
  7. MEDASON [Concomitant]
     Indication: Endocrine disorder
     Route: 042
     Dates: start: 20180605, end: 20180619
  8. MEDASON [Concomitant]
     Indication: Metabolic disorder
  9. AMOXICILLIN\CLAVULANATE POTASSIUM [Concomitant]
     Active Substance: AMOXICILLIN\CLAVULANATE POTASSIUM
     Indication: Antibiotic prophylaxis
     Dosage: STAT
     Route: 041
     Dates: start: 20180624, end: 20180624
  10. AMOXICILLIN\CLAVULANATE POTASSIUM [Concomitant]
     Active Substance: AMOXICILLIN\CLAVULANATE POTASSIUM
     Indication: Antibiotic prophylaxis
     Dosage: AMOXICILLIN 875 MG/CLAVULANIC ACID 125 MG
     Route: 048
     Dates: start: 20180624, end: 20180627
  11. PREDNISOLONE [Concomitant]
     Active Substance: PREDNISOLONE
     Indication: Endocrine disorder
     Route: 048
     Dates: start: 20180605, end: 20180703
  12. PREDNISOLONE [Concomitant]
     Active Substance: PREDNISOLONE
     Indication: Metabolic disorder
  13. CELEBREX [Concomitant]
     Active Substance: CELECOXIB
     Indication: Analgesic therapy
     Route: 048
     Dates: start: 20180605, end: 20180703
  14. CELEBREX [Concomitant]
     Active Substance: CELECOXIB
     Route: 048
     Dates: start: 20180627
  15. BROEN-C [Concomitant]
     Indication: Respiratory disorder
     Route: 048
     Dates: start: 20180624, end: 20180627
  16. ACETAMINOPHEN\TRAMADOL [Concomitant]
     Active Substance: ACETAMINOPHEN\TRAMADOL
     Indication: Analgesic therapy
     Route: 048
     Dates: start: 20180703
  17. BOKEY [Concomitant]
     Indication: Blood disorder
     Route: 048
     Dates: start: 20180627
  18. BISOPROLOL FUMARATE [Concomitant]
     Active Substance: BISOPROLOL FUMARATE
     Indication: Cardiovascular disorder
     Route: 048
     Dates: start: 20180627
  19. COXINE [Concomitant]
     Indication: Cardiovascular disorder
     Route: 048
     Dates: start: 20180627
  20. SMECTA [Concomitant]
     Active Substance: MONTMORILLONITE
     Indication: Gastrointestinal disorder
     Dosage: DAILY DOSE:3 PK??UNIT DOSE: 1PK
     Route: 048
     Dates: start: 20180703
  21. TAMLOSIN D [Concomitant]
     Indication: Urinary tract disorder
     Route: 048
     Dates: start: 20180703
  22. TAMLOSIN D [Concomitant]
     Indication: Nephrotic syndrome
  23. WELIZEN [Concomitant]
     Indication: Gastrointestinal disorder
     Route: 048
     Dates: start: 20180627, end: 20180702
  24. BIO-THREE [Concomitant]
     Active Substance: HERBALS
     Indication: Gastrointestinal disorder
     Dosage: DAILY DOSE: 2 PK??UNIT DOSE: 1 PK
     Route: 048
     Dates: start: 20180702

REACTIONS (3)
  - Cough [Recovered/Resolved]
  - Pneumonia [Recovered/Resolved]
  - Pulmonary tuberculosis [Unknown]

NARRATIVE: CASE EVENT DATE: 20180101
